FAERS Safety Report 8160137-0 (Version None)
Quarter: 2012Q1

REPORT INFORMATION
  Report Type: 
  Country: None (occurrence: None)
  Receive Date: 20120223
  Receipt Date: 20120218
  Transmission Date: 20120608
  Serious: Yes (Death, Other)
  Sender: FDA-Public Use
  Company Number: US-ELI_LILLY_AND_COMPANY-US201202005744

PATIENT
  Age: 75 Year
  Sex: Male

DRUGS (1)
  1. EFFIENT [Suspect]

REACTIONS (2)
  - HAEMORRHAGE INTRACRANIAL [None]
  - DEATH [None]
